FAERS Safety Report 4461956-4 (Version None)
Quarter: 2004Q3

REPORT INFORMATION
  Report Type: 
  Country: None (occurrence: None)
  Receive Date: 20040929
  Receipt Date: 20031201
  Transmission Date: 20050211
  Serious: No
  Sender: FDA-Public Use
  Company Number: US-GLAXOSMITHKLINE-A0441448A

PATIENT
  Age: 56 Year
  Sex: Female

DRUGS (6)
  1. SEREVENT [Suspect]
     Indication: ASTHMA
     Dosage: 1PUFF TWICE PER DAY
     Route: 055
  2. AZMACORT [Concomitant]
  3. CARDIAZEM [Concomitant]
  4. LANOXIN [Concomitant]
  5. THYROID MEDICATION [Concomitant]
  6. GLUCOTROL [Concomitant]

REACTIONS (1)
  - TACHYCARDIA [None]
